FAERS Safety Report 6519580-5 (Version None)
Quarter: 2009Q4

REPORT INFORMATION
  Report Type: 
  Country: None (occurrence: None)
  Receive Date: 20091228
  Receipt Date: 20091224
  Transmission Date: 20100525
  Serious: Yes (Life-Threatening)
  Sender: FDA-Public Use
  Company Number: US-JNJFOC-20091206360

PATIENT
  Sex: Male

DRUGS (3)
  1. RISPERIDONE [Suspect]
     Indication: DRUG USE FOR UNKNOWN INDICATION
     Route: 065
  2. CLONIDINE [Concomitant]
     Route: 065
  3. METHYLPHENIDATE HCL [Concomitant]
     Route: 065

REACTIONS (1)
  - UNRESPONSIVE TO STIMULI [None]
